FAERS Safety Report 15253563 (Version 2)
Quarter: 2018Q3

REPORT INFORMATION
  Report Type: Spontaneous
  Country: US (occurrence: US)
  Receive Date: 20180808
  Receipt Date: 20180925
  Transmission Date: 20181010
  Serious: Yes (Hospitalization, Other)
  Sender: FDA-Public Use
  Company Number: PHEH2018US031945

PATIENT
  Age: 26 Year
  Sex: Female
  Weight: 86.8 kg

DRUGS (1)
  1. COSENTYX [Suspect]
     Active Substance: SECUKINUMAB
     Indication: PSORIASIS
     Dosage: UNK, QMO
     Route: 058
     Dates: start: 20170112, end: 20180501

REACTIONS (6)
  - Pyrexia [Unknown]
  - Lower gastrointestinal haemorrhage [Unknown]
  - Colitis ulcerative [Recovered/Resolved with Sequelae]
  - Megacolon [Unknown]
  - Diarrhoea [Unknown]
  - Abdominal pain [Unknown]

NARRATIVE: CASE EVENT DATE: 20180520
